FAERS Safety Report 14122704 (Version 2)
Quarter: 2018Q1

REPORT INFORMATION
  Report Type: Report from Study
  Country: AT (occurrence: AT)
  Receive Date: 20171025
  Receipt Date: 20180209
  Transmission Date: 20180508
  Serious: Yes (Other)
  Sender: FDA-Public Use
  Company Number: AT-ROCHE-2014399

PATIENT

DRUGS (2)
  1. ALTEPLASE. [Suspect]
     Active Substance: ALTEPLASE
     Indication: ISCHAEMIC STROKE
     Dosage: 10% IN A BOLUS
     Route: 040
  2. ALTEPLASE. [Suspect]
     Active Substance: ALTEPLASE
     Dosage: THE REMAINING 90% IN AN INFUSION OVER 1 HOUR
     Route: 041

REACTIONS (4)
  - Angioedema [Unknown]
  - Skin haemorrhage [Unknown]
  - Cerebral haemorrhage [Unknown]
  - Soft tissue haemorrhage [Unknown]
